FAERS Safety Report 7301354-9 (Version None)
Quarter: 2010Q4

REPORT INFORMATION
  Report Type: 
  Country: None (occurrence: None)
  Receive Date: 20101229
  Receipt Date: 20101027
  Transmission Date: 20110411
  Serious: No
  Sender: FDA-Public Use
  Company Number: 1000017057

PATIENT
  Age: 89 Year
  Sex: Female

DRUGS (5)
  1. BYSTOLIC [Suspect]
     Indication: HYPERTENSION
     Dosage: 5 MG (5 MG, 1 IN 1 D), 10 MG (10 MG, 1 IN 1 D) ORAL
     Route: 048
     Dates: start: 20100801, end: 20101013
  2. BYSTOLIC [Suspect]
     Indication: HYPERTENSION
     Dosage: 5 MG (5 MG, 1 IN 1 D), 10 MG (10 MG, 1 IN 1 D) ORAL
     Route: 048
     Dates: start: 20101014
  3. BENICAR HCT (OLMESARTAN MEDOXOMIL, HYDROCHLOROTHIAZIDE) (OLMESARTAN ME [Concomitant]
  4. ASPIRIN [Concomitant]
  5. SYNTHROID (LEVOTHYROXINE SODIUM) (LEVOTHYROXINE SODIUM) [Concomitant]

REACTIONS (3)
  - DIZZINESS [None]
  - JOINT SWELLING [None]
  - TREMOR [None]
